FAERS Safety Report 5502395-4 (Version None)
Quarter: 2007Q4

REPORT INFORMATION
  Report Type: 
  Country: None (occurrence: None)
  Receive Date: 20071030
  Receipt Date: 20071018
  Transmission Date: 20080405
  Serious: Yes (Other)
  Sender: FDA-Public Use
  Company Number: GB-PFIZER INC-2007060878

PATIENT
  Sex: Male

DRUGS (7)
  1. EXUBERA [Suspect]
     Indication: DIABETES MELLITUS
  2. ACTOS [Concomitant]
  3. AMIAS [Concomitant]
  4. FUROSEMIDE [Concomitant]
  5. GRISEOFULVIN [Concomitant]
  6. QUININE SULFATE [Concomitant]
  7. DICLOFLEX [Concomitant]

REACTIONS (4)
  - BLOOD GLUCOSE FLUCTUATION [None]
  - BLOOD GLUCOSE INCREASED [None]
  - DIARRHOEA [None]
  - FATIGUE [None]
